FAERS Safety Report 23639572 (Version 2)
Quarter: 2024Q2

REPORT INFORMATION
  Report Type: Spontaneous
  Country: JP (occurrence: JP)
  Receive Date: 20240316
  Receipt Date: 20240403
  Transmission Date: 20240716
  Serious: Yes (Other)
  Sender: FDA-Public Use
  Company Number: JP-UCBJ-CD202402142UCBPHAPROD

PATIENT
  Age: 5 Year
  Sex: Male

DRUGS (3)
  1. VIMPAT [Suspect]
     Active Substance: LACOSAMIDE
     Indication: Focal dyscognitive seizures
     Dosage: 140 MILLIGRAM, 2X/DAY (BID)
     Route: 048
  2. CLONAZEPAM [Suspect]
     Active Substance: CLONAZEPAM
     Indication: Focal dyscognitive seizures
     Dosage: 0.5 MILLIGRAM
     Route: 048
  3. ZONISAMIDE [Suspect]
     Active Substance: ZONISAMIDE
     Indication: Focal dyscognitive seizures
     Dosage: 120 MILLIGRAM
     Route: 048

REACTIONS (3)
  - Epilepsy [Recovered/Resolved]
  - Corpus callosotomy [Unknown]
  - Multiple-drug resistance [Unknown]
